FAERS Safety Report 4530808-3 (Version None)
Quarter: 2004Q4

REPORT INFORMATION
  Report Type: 
  Country: None (occurrence: None)
  Receive Date: 20041129
  Receipt Date: 20040521
  Transmission Date: 20050328
  Serious: Yes (Death, Hospitalization)
  Sender: FDA-Public Use
  Company Number: US_0405103231

PATIENT
  Age: 42 Year
  Sex: Male
  Weight: 107 kg

DRUGS (9)
  1. ZYPREXA [Suspect]
     Indication: BIPOLAR DISORDER
     Dosage: 15 MG/1 DAY
  2. INDERAL [Concomitant]
  3. PROTONIX [Concomitant]
  4. THIAMINE [Concomitant]
  5. SODIUM CHLORIDE 0.9% [Concomitant]
  6. ATIVAN [Concomitant]
  7. EXTRA STRENGTH TYLENOL [Concomitant]
  8. AMITRIPTYLINE [Concomitant]
  9. DIAZEPAM [Concomitant]

REACTIONS (2)
  - ACCIDENTAL OVERDOSE [None]
  - NEUROLEPTIC MALIGNANT SYNDROME [None]
